FAERS Safety Report 10724310 (Version 1)
Quarter: 2015Q1

REPORT INFORMATION
  Report Type: Spontaneous
  Country: US (occurrence: US)
  Receive Date: 20150120
  Receipt Date: 20150120
  Transmission Date: 20150721
  Serious: Yes (Other)
  Sender: FDA-Public Use
  Company Number: US-BAYER-2015-008242

PATIENT
  Age: 25 Year
  Sex: Female

DRUGS (2)
  1. MIRENA [Suspect]
     Active Substance: LEVONORGESTREL
     Indication: MENORRHAGIA
  2. MIRENA [Suspect]
     Active Substance: LEVONORGESTREL
     Indication: CONTRACEPTION
     Dosage: 20 MCG/24HR, CONT
     Route: 015
     Dates: start: 20141222

REACTIONS (6)
  - Genital haemorrhage [Not Recovered/Not Resolved]
  - Gingival bleeding [None]
  - Abdominal pain [None]
  - Oligomenorrhoea [None]
  - Back pain [Not Recovered/Not Resolved]
  - Sciatica [None]

NARRATIVE: CASE EVENT DATE: 201412
